FAERS Safety Report 12759065 (Version 1)
Quarter: 2016Q3

REPORT INFORMATION
  Report Type: Spontaneous
  Country: GB (occurrence: GB)
  Receive Date: 20160919
  Receipt Date: 20160919
  Transmission Date: 20161109
  Serious: Yes (Hospitalization, Other)
  Sender: FDA-Public Use
  Company Number: GB-PFIZER INC-2016421756

PATIENT
  Sex: Female

DRUGS (1)
  1. XALKORI [Suspect]
     Active Substance: CRIZOTINIB
     Indication: LUNG NEOPLASM MALIGNANT
     Dosage: 200MG TO 250MG, 2X/DAY
     Dates: start: 201605

REACTIONS (5)
  - Anaemia [Unknown]
  - Peripheral swelling [Unknown]
  - Acute kidney injury [Unknown]
  - Urine output decreased [Unknown]
  - Fatigue [Unknown]
